FAERS Safety Report 5339813-0 (Version None)
Quarter: 2007Q2

REPORT INFORMATION
  Report Type: 
  Country: None (occurrence: None)
  Receive Date: 20070524
  Receipt Date: 20070515
  Transmission Date: 20071010
  Serious: Yes (Hospitalization)
  Sender: FDA-Public Use
  Company Number: B0471652A

PATIENT
  Age: 57 Year
  Sex: Male

DRUGS (5)
  1. LITHIUM SALT (FORMULATION UNKNOWN) (LITHIUM SALT) (GENERIC) [Suspect]
  2. QUETIAPINE [Concomitant]
  3. PAROXETINE HYDROCHLORIDE [Concomitant]
  4. VALPROIC ACID [Concomitant]
  5. PROPRANOLOL HYDROCHLORIDE [Concomitant]

REACTIONS (18)
  - AFFECT LABILITY [None]
  - BALANCE DISORDER [None]
  - BLOOD CREATININE INCREASED [None]
  - BLOOD UREA INCREASED [None]
  - BODY TEMPERATURE INCREASED [None]
  - CEREBRAL ATROPHY [None]
  - DECREASED APPETITE [None]
  - DYSARTHRIA [None]
  - DYSKINESIA [None]
  - FAECAL INCONTINENCE [None]
  - FALL [None]
  - GAIT DISTURBANCE [None]
  - LOSS OF CONSCIOUSNESS [None]
  - MUSCLE RIGIDITY [None]
  - THERAPEUTIC AGENT TOXICITY [None]
  - TREMOR [None]
  - URINARY INCONTINENCE [None]
  - URINE CANNABINOIDS INCREASED [None]
